FAERS Safety Report 9056532 (Version 1)
Quarter: 2013Q1

REPORT INFORMATION
  Report Type: Report from Study
  Country: AU (occurrence: AU)
  Receive Date: 20130204
  Receipt Date: 20130204
  Transmission Date: 20140127
  Serious: Yes (Life-Threatening, Hospitalization)
  Sender: FDA-Public Use
  Company Number: AU-GLAXOSMITHKLINE-B0599306A

PATIENT
  Age: 51 None
  Sex: Female
  Weight: 68.2 kg

DRUGS (6)
  1. LAPATINIB [Suspect]
     Indication: BREAST CANCER METASTATIC
     Dosage: 1250MG PER DAY
     Route: 048
     Dates: start: 20090611
  2. DOCETAXEL [Suspect]
     Indication: BREAST CANCER METASTATIC
     Dosage: 122MG EVERY 3 WEEKS
     Route: 042
     Dates: start: 20090611
  3. PROCHLORPERAZINE [Concomitant]
     Indication: NAUSEA
  4. DOLASETRON [Concomitant]
     Indication: NAUSEA
     Dates: start: 20090609
  5. LORATADINE [Concomitant]
     Indication: PREMEDICATION
     Dates: start: 20090609
  6. IBUPROFEN [Concomitant]
     Indication: ARTHRALGIA
     Dates: start: 200909

REACTIONS (4)
  - Infection [Recovered/Resolved]
  - Pyrexia [Recovered/Resolved]
  - Hypoalbuminaemia [Unknown]
  - White blood cell count increased [Unknown]
